FAERS Safety Report 4586800-6 (Version None)
Quarter: 2005Q1

REPORT INFORMATION
  Report Type: 
  Country: None (occurrence: None)
  Receive Date: 20050218
  Receipt Date: 20050204
  Transmission Date: 20050727
  Serious: Yes (Other)
  Sender: FDA-Public Use
  Company Number: 200510441JP

PATIENT
  Sex: Male

DRUGS (3)
  1. AMARYL [Suspect]
     Route: 048
  2. BASEN [Concomitant]
  3. BLOPRESS [Concomitant]

REACTIONS (3)
  - ACIDOSIS [None]
  - BLOOD POTASSIUM INCREASED [None]
  - BLOOD UREA INCREASED [None]
